FAERS Safety Report 7938264-X (Version None)
Quarter: 2011Q4

REPORT INFORMATION
  Report Type: 
  Country: None (occurrence: None)
  Receive Date: 20111123
  Receipt Date: 20111118
  Transmission Date: 20120403
  Serious: No
  Sender: FDA-Public Use
  Company Number: US-B.I. PHARMACEUTICALS,INC./RIDGEFIELD-2011-BP-18243BP

PATIENT
  Sex: Female
  Weight: 90.72 kg

DRUGS (26)
  1. OMEPRAZOLE [Concomitant]
     Indication: GASTROOESOPHAGEAL REFLUX DISEASE
     Dosage: 40 MG
     Route: 048
     Dates: start: 20110203
  2. MULTI-VITAMIN [Concomitant]
     Indication: VITAMIN SUPPLEMENTATION
     Route: 048
  3. ALBUTEROL INHALER [Concomitant]
     Indication: BRONCHITIS
     Route: 055
     Dates: start: 20101101
  4. VITAMIN D [Concomitant]
     Indication: VITAMIN SUPPLEMENTATION
     Route: 048
  5. IBUPROFEN [Concomitant]
  6. SYNTHROID [Concomitant]
     Indication: SUPPLEMENTATION THERAPY
     Dosage: 112 MCG
     Route: 048
     Dates: start: 20110203
  7. GLUCOPHAGE [Concomitant]
     Indication: TYPE 2 DIABETES MELLITUS
     Dosage: 2000 MG
     Route: 048
     Dates: start: 20100311
  8. VENTOLIN [Concomitant]
     Dates: start: 20110203
  9. BENADRYL [Concomitant]
  10. CALCIUM [Concomitant]
     Route: 048
     Dates: start: 20100624
  11. TRADJENTA [Suspect]
     Indication: TYPE 2 DIABETES MELLITUS
     Dosage: 5 MG
     Route: 048
     Dates: end: 20110714
  12. ASPIRIN [Concomitant]
     Indication: PAIN
     Dosage: 325 MG
     Route: 048
     Dates: start: 20110203
  13. TRILIPIX [Concomitant]
     Dosage: 135 MG
     Route: 048
     Dates: start: 20110203
  14. POTASSIUM [Concomitant]
     Indication: MINERAL SUPPLEMENTATION
     Dosage: 99 MG
     Route: 048
  15. MAGNESIUM SULFATE [Concomitant]
     Indication: MINERAL SUPPLEMENTATION
     Dosage: 250 MG
     Route: 048
  16. SOVAGA [Concomitant]
     Dosage: 1 G
  17. CEFUROXIME [Concomitant]
  18. PRAVACHOL [Concomitant]
     Indication: BLOOD CHOLESTEROL
     Dosage: 20 MG
     Route: 048
     Dates: start: 20110203
  19. LOVAZA [Concomitant]
     Dosage: 4 G
     Route: 048
     Dates: start: 20110630
  20. FLUTICASONE PROPIONATE [Concomitant]
     Indication: BRONCHITIS
     Route: 055
     Dates: start: 20101101
  21. ASCORBIC ACID [Concomitant]
     Indication: VITAMIN SUPPLEMENTATION
     Dosage: 1000 MG
     Route: 048
     Dates: start: 20100624
  22. ATARAX [Concomitant]
  23. GABAPENTIN [Concomitant]
     Dosage: 600 MG
     Dates: start: 20110203
  24. METOPROLOL TARTRATE [Concomitant]
     Indication: BLOOD PRESSURE
     Dosage: 50 MG
     Route: 048
     Dates: start: 20110203
  25. FLOVENT [Concomitant]
     Indication: BRONCHITIS
     Route: 055
     Dates: start: 20110630
  26. ATROVENT [Concomitant]
     Indication: BRONCHITIS
     Dosage: 17 MCG
     Route: 055
     Dates: start: 20101101

REACTIONS (5)
  - SKIN EXFOLIATION [None]
  - RASH PRURITIC [None]
  - ECZEMA [None]
  - BLISTER [None]
  - RASH GENERALISED [None]
